FAERS Safety Report 9976719 (Version 1)
Quarter: 2014Q1

REPORT INFORMATION
  Report Type: Report from Study
  Country: US (occurrence: US)
  Receive Date: 20140306
  Receipt Date: 20140306
  Transmission Date: 20141002
  Serious: No
  Sender: FDA-Public Use
  Company Number: US-ABBVIE-13P-163-1166101-00

PATIENT
  Age: 38 Year
  Sex: Female

DRUGS (3)
  1. HUMIRA [Suspect]
     Indication: PSORIASIS
     Dates: start: 20131025, end: 20131025
  2. HUMIRA [Suspect]
  3. MELOXICAM [Concomitant]
     Indication: PSORIATIC ARTHROPATHY
     Dosage: DAILYBUT PATIENT TAKES IT 2-3 TIMES A WEEK BECAUSE FORGETS TO TAKE

REACTIONS (1)
  - Injection site pain [Recovered/Resolved]
